FAERS Safety Report 9349523 (Version 2)
Quarter: 2013Q3

REPORT INFORMATION
  Report Type: Spontaneous
  Country: US (occurrence: US)
  Receive Date: 20130614
  Receipt Date: 20130808
  Transmission Date: 20140515
  Serious: Yes (Death)
  Sender: FDA-Public Use
  Company Number: US-GLAXOSMITHKLINE-A1026947A

PATIENT
  Age: 70 Year
  Sex: Male

DRUGS (5)
  1. ADVAIR [Suspect]
     Indication: ASTHMA
     Dosage: 1PUFF TWICE PER DAY
     Route: 055
  2. PROVENTIL [Concomitant]
  3. SPIRIVA [Concomitant]
  4. SYNTHROID [Concomitant]
  5. ZOLOFT [Concomitant]

REACTIONS (1)
  - Neoplasm malignant [Fatal]
